FAERS Safety Report 13035998 (Version 1)
Quarter: 2016Q4

REPORT INFORMATION
  Report Type: Spontaneous
  Country: US (occurrence: US)
  Receive Date: 20161216
  Receipt Date: 20161216
  Transmission Date: 20170207
  Serious: Yes (Other)
  Sender: FDA-Public Use
  Company Number: US-AMGEN-USASP2016173974

PATIENT
  Age: 8 Year
  Sex: Female

DRUGS (20)
  1. BLINCYTO [Suspect]
     Active Substance: BLINATUMOMAB
     Indication: PRECURSOR B-LYMPHOBLASTIC LYMPHOMA REFRACTORY
     Dosage: UNK
     Route: 065
  2. VINCRISTINE [Suspect]
     Active Substance: VINCRISTINE
     Indication: PRODUCT USED FOR UNKNOWN INDICATION
     Dosage: UNK
     Route: 065
  3. METHOTREXATE. [Suspect]
     Active Substance: METHOTREXATE
     Indication: PRODUCT USED FOR UNKNOWN INDICATION
     Dosage: UNK
     Route: 065
  4. VORICONAZOLE. [Concomitant]
     Active Substance: VORICONAZOLE
     Dosage: 150 MG, BID
     Route: 048
  5. RANIDINE [Concomitant]
     Dosage: 75 MG, BID
     Route: 048
  6. PERI-COLACE [Concomitant]
     Active Substance: CASANTHRANOL\DOCUSATE SODIUM
     Indication: CONSTIPATION
     Dosage: UNK, BID
     Route: 048
  7. ACYCLOVIR. [Concomitant]
     Active Substance: ACYCLOVIR
     Dosage: 200 MG/5ML, BID
     Route: 048
  8. PERCOCET [Concomitant]
     Active Substance: ACETAMINOPHEN\OXYCODONE HYDROCHLORIDE
     Indication: PAIN
     Dosage: 25/325 MG, Q6H
     Route: 048
  9. ALLOPURINOL. [Concomitant]
     Active Substance: ALLOPURINOL
     Dosage: 100 MG, BID
     Route: 048
  10. THIOTEPA. [Concomitant]
     Active Substance: THIOTEPA
     Dosage: UNK
  11. ZOFRAN [Concomitant]
     Active Substance: ONDANSETRON HYDROCHLORIDE
     Indication: NAUSEA
     Dosage: 4 MG, Q8H
     Route: 048
  12. PENICILLIN V POTASSIUM. [Concomitant]
     Active Substance: PENICILLIN V POTASSIUM
     Dosage: 250 MG, BID
     Route: 048
  13. EMLA [Concomitant]
     Active Substance: LIDOCAINE\PRILOCAINE
     Dosage: UNK, QWK
     Route: 061
  14. SEPTRA [Concomitant]
     Active Substance: SULFAMETHOXAZOLE\TRIMETHOPRIM
     Dosage: 80 MG 400 MG, BID
     Route: 048
  15. MORPHINE [Concomitant]
     Active Substance: MORPHINE
     Indication: PAIN
     Dosage: 10 MG/5ML, Q6H
     Route: 048
  16. ZOFRAN [Concomitant]
     Active Substance: ONDANSETRON HYDROCHLORIDE
     Indication: VOMITING
  17. DAUNORUBICIN [Suspect]
     Active Substance: DAUNORUBICIN
     Indication: PRODUCT USED FOR UNKNOWN INDICATION
     Dosage: UNK
     Route: 065
  18. CARAFATE [Concomitant]
     Active Substance: SUCRALFATE
     Dosage: 600 MG, TID
     Route: 048
  19. LANSOPRAZOL [Concomitant]
     Active Substance: LANSOPRAZOLE
     Dosage: 30 MG, QD
     Route: 048
  20. DEXAMETHASONE. [Concomitant]
     Active Substance: DEXAMETHASONE
     Indication: PRECURSOR B-LYMPHOBLASTIC LYMPHOMA REFRACTORY
     Dosage: UNK

REACTIONS (3)
  - Acute lymphocytic leukaemia recurrent [Unknown]
  - Graft versus host disease in skin [Unknown]
  - Cytomegalovirus viraemia [Unknown]
